FAERS Safety Report 9932412 (Version 1)
Quarter: 2014Q1

REPORT INFORMATION
  Report Type: Report from Study
  Country: US (occurrence: US)
  Receive Date: 20140228
  Receipt Date: 20140228
  Transmission Date: 20141002
  Serious: No
  Sender: FDA-Public Use
  Company Number: US-ABBVIE-13P-163-1148817-00

PATIENT
  Sex: Male

DRUGS (2)
  1. ANDROGEL [Suspect]
     Indication: BLOOD TESTOSTERONE DECREASED
     Dosage: 37.5 MG IN THE MORNING AND THEN APPLIES 12.5 MG AT NOON DAILY
     Route: 061
     Dates: start: 2010
  2. IBUPROFEN [Concomitant]
     Indication: ARTHRITIS

REACTIONS (6)
  - Disturbance in attention [Not Recovered/Not Resolved]
  - Disturbance in attention [Not Recovered/Not Resolved]
  - Incorrect dose administered [Not Recovered/Not Resolved]
  - Nervousness [Recovered/Resolved]
  - Blood testosterone decreased [Unknown]
  - Poor quality drug administered [Unknown]
